FAERS Safety Report 14055590 (Version 1)
Quarter: 2017Q4

REPORT INFORMATION
  Report Type: Spontaneous
  Country: PT (occurrence: PT)
  Receive Date: 20171006
  Receipt Date: 20171006
  Transmission Date: 20180321
  Serious: Yes (Other)
  Sender: FDA-Public Use
  Company Number: PT-AUROBINDO-AUR-APL-2017-41237

PATIENT
  Age: 55 Year
  Sex: Male
  Weight: 68 kg

DRUGS (2)
  1. DULOXETINE AUROVITAS GASTRO-RESISTANT CAPSULES [Suspect]
     Active Substance: DULOXETINE
     Indication: DEPRESSION
     Dosage: 60 MG, ONCE A DAY
     Route: 048
     Dates: start: 20170913, end: 20170915
  2. DIAZEPAM RATIOPHARM [Concomitant]
     Active Substance: DIAZEPAM
     Indication: SEDATIVE THERAPY
     Dosage: 10 MG, TWO TIMES A DAY
     Route: 048
     Dates: start: 201703

REACTIONS (5)
  - Mood altered [Recovered/Resolved]
  - Product substitution issue [Unknown]
  - Hyperhidrosis [Recovered/Resolved]
  - Headache [Recovered/Resolved]
  - Diarrhoea [Recovered/Resolved]

NARRATIVE: CASE EVENT DATE: 20170913
